FAERS Safety Report 7282302-7 (Version None)
Quarter: 2011Q1

REPORT INFORMATION
  Report Type: 
  Country: None (occurrence: None)
  Receive Date: 20110209
  Receipt Date: 20110204
  Transmission Date: 20110831
  Serious: Yes (Other)
  Sender: FDA-Public Use
  Company Number: BR-PFIZER INC-2011012680

PATIENT
  Sex: Female
  Weight: 3.72 kg

DRUGS (4)
  1. NORDETTE-21 [Suspect]
     Indication: CONTRACEPTION
     Dosage: 1 TABLET PER DAY
     Route: 064
     Dates: start: 20050101
  2. AAS [Concomitant]
     Route: 064
  3. METHYLDOPA [Concomitant]
     Indication: HYPERTENSION
     Dosage: UNK
     Route: 064
     Dates: start: 20080301, end: 20080801
  4. FERROUS SULFATE [Concomitant]
     Indication: SUPPLEMENTATION THERAPY
     Route: 064

REACTIONS (4)
  - SPEECH DISORDER [None]
  - JAUNDICE [None]
  - DRUG EXPOSURE DURING PREGNANCY [None]
  - CONSTIPATION [None]
